FAERS Safety Report 8612657 (Version 5)
Quarter: 2013Q2

REPORT INFORMATION
  Report Type: Spontaneous
  Country: US (occurrence: US)
  Receive Date: 20120613
  Receipt Date: 20130616
  Transmission Date: 20140414
  Serious: Yes (Other)
  Sender: FDA-Public Use
  Company Number: US-PFIZER INC-2012137059

PATIENT
  Age: 59 Year
  Sex: Female
  Weight: 85.71 kg

DRUGS (2)
  1. EFFEXOR XR [Suspect]
     Indication: NERVOUS SYSTEM DISORDER
     Dosage: 150 MG, 1X/DAY
  2. TOPROL XL [Concomitant]
     Indication: HYPERTENSION
     Dosage: 50 MG, 2X/DAY

REACTIONS (2)
  - Accident at work [Unknown]
  - Nasopharyngitis [Not Recovered/Not Resolved]
